FAERS Safety Report 15136023 (Version 3)
Quarter: 2018Q3

REPORT INFORMATION
  Report Type: Spontaneous
  Country: US (occurrence: US)
  Receive Date: 20180712
  Receipt Date: 20180813
  Transmission Date: 20181010
  Serious: No
  Sender: FDA-Public Use
  Company Number: US-TEVA-2018-US-925375

PATIENT
  Age: 19 Year
  Sex: Female

DRUGS (2)
  1. JUNEL [Suspect]
     Active Substance: ETHINYL ESTRADIOL\NORETHINDRONE ACETATE
     Dosage: FORM STRENGTH 1.5 MG/30 MCG
     Route: 065
     Dates: start: 20180429
  2. JUNEL [Suspect]
     Active Substance: ETHINYL ESTRADIOL\NORETHINDRONE ACETATE
     Route: 065

REACTIONS (2)
  - Vaginal haemorrhage [Unknown]
  - Product storage error [Unknown]

NARRATIVE: CASE EVENT DATE: 201807
